FAERS Safety Report 5134374-3 (Version None)
Quarter: 2006Q4

REPORT INFORMATION
  Report Type: 
  Country: None (occurrence: None)
  Receive Date: 20061025
  Receipt Date: 20061004
  Transmission Date: 20070319
  Serious: Yes (Other)
  Sender: FDA-Public Use
  Company Number: PHBS2006ES15629

PATIENT
  Age: 51 Year
  Sex: Male

DRUGS (3)
  1. AREDIA [Suspect]
     Indication: MULTIPLE MYELOMA
     Dosage: 90 MG, QMO
     Route: 065
     Dates: start: 20010101
  2. MELPHALAN [Suspect]
     Dosage: UNK, 15 CYCLES
     Route: 065
     Dates: start: 19970101
  3. HEMATOPOETIC PROGENITOR CELLS HUMAN [Concomitant]
     Dosage: AUTOTRANSPLANT
     Route: 065

REACTIONS (2)
  - COLLAGEN DISORDER [None]
  - FIBROSIS [None]
